FAERS Safety Report 7998638-8 (Version None)
Quarter: 2011Q4

REPORT INFORMATION
  Report Type: 
  Country: None (occurrence: None)
  Receive Date: 20111221
  Receipt Date: 20111213
  Transmission Date: 20120403
  Serious: Yes (Hospitalization)
  Sender: FDA-Public Use
  Company Number: CH-NAPPMUNDI-DEU-2011-0008187

PATIENT
  Age: 80 Year
  Sex: Female
  Weight: 61 kg

DRUGS (20)
  1. METOLAZONE [Interacting]
     Indication: ESSENTIAL HYPERTENSION
     Dosage: 5 MG, DAILY
     Route: 048
     Dates: start: 20110101, end: 20110208
  2. BUPRENORPHINE [Suspect]
     Indication: PAIN
     Dosage: 52.5 MCG, Q3D
     Route: 062
     Dates: start: 20110101
  3. RAMIPRIL [Interacting]
     Indication: ESSENTIAL HYPERTENSION
     Dosage: 1.25 MG, DAILY
     Route: 048
  4. TRIMIPRAMINE MALEATE [Suspect]
     Indication: PRODUCT USED FOR UNKNOWN INDICATION
     Dosage: 25 MG, DAILY
     Route: 048
     Dates: start: 20110101, end: 20110201
  5. MAGNESIOCARD [Concomitant]
  6. PARAGOL [Concomitant]
  7. DUPHALAC [Concomitant]
  8. CALCIMAGON                         /00751501/ [Concomitant]
  9. OXAZEPAM [Suspect]
     Indication: PRODUCT USED FOR UNKNOWN INDICATION
     Dosage: 15 MG, DAILY
     Dates: end: 20110209
  10. LYRICA [Suspect]
     Indication: PRODUCT USED FOR UNKNOWN INDICATION
     Dosage: 25 MG, BID
     Route: 048
     Dates: end: 20110208
  11. NOVALGIN                           /06276704/ [Concomitant]
  12. PERENTEROL                         /00838001/ [Concomitant]
  13. ASPIRIN [Concomitant]
  14. DUSPATALIN                         /00139403/ [Concomitant]
  15. VITALUX                            /01586901/ [Concomitant]
  16. OXYCONTIN [Suspect]
     Indication: PAIN
     Dosage: 20 MG, TID
     Route: 048
     Dates: start: 20110101, end: 20110208
  17. TORSEMIDE [Interacting]
     Indication: PRODUCT USED FOR UNKNOWN INDICATION
     Dosage: 200 MG, DAILY
     Route: 048
     Dates: start: 20110201, end: 20110208
  18. NITRAZEPAM [Suspect]
     Indication: PRODUCT USED FOR UNKNOWN INDICATION
     Dosage: 7.5 MG, SEE TEXT
     Route: 048
  19. BISOPROLOL FUMARATE [Concomitant]
  20. PANTOZOL                           /01263204/ [Concomitant]

REACTIONS (7)
  - CONFUSIONAL STATE [None]
  - THERAPEUTIC RESPONSE INCREASED [None]
  - RENAL FAILURE ACUTE [None]
  - DELIRIUM [None]
  - DISORIENTATION [None]
  - MEDICATION ERROR [None]
  - HYPONATRAEMIA [None]
